FAERS Safety Report 19598442 (Version 1)
Quarter: 2021Q3

REPORT INFORMATION
  Report Type: Spontaneous
  Country: CA (occurrence: CA)
  Receive Date: 20210722
  Receipt Date: 20210722
  Transmission Date: 20211014
  Serious: Yes (Death, Hospitalization, Other)
  Sender: FDA-Public Use
  Company Number: CA-PFIZER INC-2021106016

PATIENT
  Age: 66 Year
  Sex: Male
  Weight: 104 kg

DRUGS (12)
  1. ZIRABEV [Suspect]
     Active Substance: BEVACIZUMAB-BVZR
     Dosage: 1400 MG, EVERY 3 WEEKS
     Route: 042
     Dates: start: 20210507
  2. ZIRABEV [Suspect]
     Active Substance: BEVACIZUMAB-BVZR
     Dosage: 1400 MG, EVERY 3 WEEKS
     Route: 042
     Dates: start: 20210618
  3. ZIRABEV [Suspect]
     Active Substance: BEVACIZUMAB-BVZR
     Indication: GLIOBLASTOMA
     Dosage: 1400 MG, EVERY 3 WEEKS
     Route: 042
     Dates: start: 20210212
  4. ZIRABEV [Suspect]
     Active Substance: BEVACIZUMAB-BVZR
     Dosage: 1400 MG
     Dates: start: 20210528
  5. ZIRABEV [Suspect]
     Active Substance: BEVACIZUMAB-BVZR
     Dosage: 1400 MG, EVERY 3 WEEKS
     Route: 042
     Dates: start: 20210618
  6. DEXAMETHASONE. [Concomitant]
     Active Substance: DEXAMETHASONE
     Indication: PREMEDICATION
     Dosage: UNK
  7. ZIRABEV [Suspect]
     Active Substance: BEVACIZUMAB-BVZR
     Dosage: 1400 MG, EVERY 3 WEEKS
     Route: 042
     Dates: start: 20210212, end: 20210212
  8. ZIRABEV [Suspect]
     Active Substance: BEVACIZUMAB-BVZR
     Dosage: 1400 MG, EVERY 3 WEEKS
     Route: 042
     Dates: start: 20210326, end: 20210326
  9. LOMUSTINE. [Concomitant]
     Active Substance: LOMUSTINE
     Indication: PREMEDICATION
     Dosage: UNK
     Dates: start: 202102
  10. ZIRABEV [Suspect]
     Active Substance: BEVACIZUMAB-BVZR
     Dosage: 1400 MG, EVERY 3 WEEKS
     Route: 042
     Dates: start: 20210507
  11. ZIRABEV [Suspect]
     Active Substance: BEVACIZUMAB-BVZR
     Dosage: 1400 MG
     Dates: start: 20210528
  12. ZIRABEV [Suspect]
     Active Substance: BEVACIZUMAB-BVZR
     Dosage: 1400 MG, EVERY 3 WEEKS
     Route: 042
     Dates: start: 20210618, end: 20210618

REACTIONS (10)
  - Pulmonary thrombosis [Unknown]
  - Peripheral swelling [Recovered/Resolved]
  - Off label use [Unknown]
  - Heart rate increased [Unknown]
  - Hypertension [Unknown]
  - Mobility decreased [Unknown]
  - Product dose omission issue [Unknown]
  - Erythema [Recovered/Resolved]
  - Off label use [Unknown]
  - Death [Fatal]

NARRATIVE: CASE EVENT DATE: 20210212
